FAERS Safety Report 9618944 (Version 1)
Quarter: 2013Q4

REPORT INFORMATION
  Report Type: Spontaneous
  Country: US (occurrence: US)
  Receive Date: 20131014
  Receipt Date: 20131014
  Transmission Date: 20140711
  Serious: Yes (Death, Hospitalization, Other)
  Sender: FDA-Public Use
  Company Number: US-PFIZER INC-2013291520

PATIENT
  Age: 68 Year
  Sex: Male
  Weight: 58.96 kg

DRUGS (2)
  1. SUTENT [Suspect]
     Indication: PANCREATIC NEUROENDOCRINE TUMOUR
     Dosage: 37.5 MG, 3 CAPSULE OF 12.5 MG AT A TIME, 2 WKS OFF
     Route: 048
     Dates: start: 201305
  2. PROPRANOLOL [Concomitant]
     Dosage: 10 MG, 3X/DAY
     Dates: start: 20130804

REACTIONS (2)
  - Gastrointestinal haemorrhage [Fatal]
  - Varices oesophageal [Not Recovered/Not Resolved]
